FAERS Safety Report 20421574 (Version 1)
Quarter: 2022Q1

REPORT INFORMATION
  Report Type: Spontaneous
  Country: IT (occurrence: IT)
  Receive Date: 20220203
  Receipt Date: 20220203
  Transmission Date: 20220424
  Serious: Yes (Other)
  Sender: FDA-Public Use
  Company Number: IT-PFIZER INC-202200162673

PATIENT
  Age: 8 Year
  Sex: Female

DRUGS (2)
  1. SIROLIMUS [Suspect]
     Active Substance: SIROLIMUS
     Indication: PIK3CA related overgrowth spectrum
     Dosage: 0.8 MG/M2, 2X/DAY
  2. ALPELISIB [Concomitant]
     Active Substance: ALPELISIB
     Indication: PIK3CA related overgrowth spectrum
     Dosage: 50 MG, DAILY
     Dates: start: 202004

REACTIONS (3)
  - Pneumonia mycoplasmal [Unknown]
  - Off label use [Unknown]
  - Drug ineffective for unapproved indication [Unknown]
